FAERS Safety Report 17820322 (Version 2)
Quarter: 2020Q2

REPORT INFORMATION
  Report Type: Spontaneous
  Country: US (occurrence: US)
  Receive Date: 20200525
  Receipt Date: 20200525
  Transmission Date: 20200714
  Serious: Yes (Hospitalization)
  Sender: FDA-Public Use
  Company Number: US-SHIRE-US202011437

PATIENT
  Age: 69 Year
  Sex: Male

DRUGS (2)
  1. GATTEX [Suspect]
     Active Substance: TEDUGLUTIDE\WATER
     Indication: SHORT-BOWEL SYNDROME
     Dosage: 0.325 (UNIT UNKNOWN), 1X/DAY:QD
     Route: 058
     Dates: start: 20171207, end: 20200225
  2. GATTEX [Suspect]
     Active Substance: TEDUGLUTIDE\WATER
     Dosage: UNK UNK, 1X/DAY:QD
     Route: 058
     Dates: start: 20171208, end: 20200225

REACTIONS (3)
  - Vomiting [Unknown]
  - Inability to afford medication [Unknown]
  - Diarrhoea [Unknown]

NARRATIVE: CASE EVENT DATE: 20200519
